FAERS Safety Report 10722812 (Version 4)
Quarter: 2015Q4

REPORT INFORMATION
  Report Type: Spontaneous
  Country: CA (occurrence: CA)
  Receive Date: 20150120
  Receipt Date: 20151211
  Transmission Date: 20160304
  Serious: Yes (Hospitalization, Other)
  Sender: FDA-Public Use
  Company Number: CA-ROCHE-1522997

PATIENT
  Age: 63 Year
  Sex: Female

DRUGS (7)
  1. SYMBICORT [Concomitant]
     Active Substance: BUDESONIDE\FORMOTEROL FUMARATE DIHYDRATE
     Route: 065
  2. XOLAIR [Suspect]
     Active Substance: OMALIZUMAB
     Indication: ASTHMA
     Route: 058
     Dates: start: 20100604
  3. ALVESCO [Concomitant]
     Active Substance: CICLESONIDE
     Route: 065
  4. PREDNISONE. [Concomitant]
     Active Substance: PREDNISONE
     Route: 065
  5. CETIRIZINE [Concomitant]
     Active Substance: CETIRIZINE HYDROCHLORIDE
     Route: 065
  6. VENTOLINE [Concomitant]
     Active Substance: ALBUTEROL
     Route: 065
  7. SEEBRI [Concomitant]
     Active Substance: GLYCOPYRRONIUM
     Route: 065

REACTIONS (14)
  - Pulmonary fibrosis [Unknown]
  - Pneumonia [Unknown]
  - Fall [Unknown]
  - Fracture [Unknown]
  - Vomiting [Unknown]
  - Arthritis [Unknown]
  - Oral candidiasis [Unknown]
  - Contusion [Unknown]
  - Increased upper airway secretion [Unknown]
  - Cerebral haemorrhage [Unknown]
  - Concomitant disease aggravated [Unknown]
  - Chest pain [Unknown]
  - Skin cancer [Unknown]
  - Mobility decreased [Unknown]

NARRATIVE: CASE EVENT DATE: 201311
